FAERS Safety Report 5284235-4 (Version None)
Quarter: 2007Q1

REPORT INFORMATION
  Report Type: 
  Country: None (occurrence: None)
  Receive Date: 20070327
  Receipt Date: 20070320
  Transmission Date: 20070707
  Serious: Yes (Death)
  Sender: FDA-Public Use
  Company Number: 163-21880-07031139

PATIENT
  Age: 79 Year
  Sex: Female

DRUGS (1)
  1. REVLIMID [Suspect]
     Indication: MULTIPLE MYELOMA
     Dosage: 5MG TO 10MG, ORAL
     Route: 048
     Dates: start: 20061211, end: 20070201

REACTIONS (1)
  - DISEASE PROGRESSION [None]
